FAERS Safety Report 18593832 (Version 1)
Quarter: 2020Q4

REPORT INFORMATION
  Report Type: Report from Study
  Country: US (occurrence: US)
  Receive Date: 20201209
  Receipt Date: 20201209
  Transmission Date: 20210114
  Serious: Yes (Hospitalization)
  Sender: FDA-Public Use
  Company Number: US-TAKEDA-US202006673

PATIENT
  Sex: Female

DRUGS (8)
  1. TEDUGLUTIDE [Suspect]
     Active Substance: TEDUGLUTIDE
     Dosage: 0.3500 UNK, QD
     Route: 058
     Dates: start: 20190703
  2. TEDUGLUTIDE [Suspect]
     Active Substance: TEDUGLUTIDE
     Dosage: 0.3500 UNK, QD
     Route: 058
     Dates: start: 20190703
  3. TEDUGLUTIDE [Suspect]
     Active Substance: TEDUGLUTIDE
     Indication: CROHN^S DISEASE
     Dosage: 0.35 MILLILITER, 1X/DAY:QD
     Route: 058
     Dates: start: 20190329
  4. TEDUGLUTIDE [Suspect]
     Active Substance: TEDUGLUTIDE
     Indication: CROHN^S DISEASE
     Dosage: 0.35 MILLILITER, 1X/DAY:QD
     Route: 058
     Dates: start: 20190329
  5. TEDUGLUTIDE [Suspect]
     Active Substance: TEDUGLUTIDE
     Dosage: 0.3500 UNK, QD
     Route: 058
     Dates: start: 20190703
  6. TEDUGLUTIDE [Suspect]
     Active Substance: TEDUGLUTIDE
     Indication: CROHN^S DISEASE
     Dosage: 0.35 MILLILITER, 1X/DAY:QD
     Route: 058
     Dates: start: 20190329
  7. TEDUGLUTIDE [Suspect]
     Active Substance: TEDUGLUTIDE
     Indication: CROHN^S DISEASE
     Dosage: 0.35 MILLILITER, 1X/DAY:QD
     Route: 058
     Dates: start: 20190329
  8. TEDUGLUTIDE [Suspect]
     Active Substance: TEDUGLUTIDE
     Dosage: 0.3500 UNK, QD
     Route: 058
     Dates: start: 20190703

REACTIONS (2)
  - Hospitalisation [Recovered/Resolved]
  - Pain in extremity [Unknown]
